FAERS Safety Report 9919281 (Version 1)
Quarter: 2014Q1

REPORT INFORMATION
  Report Type: Spontaneous
  Country: IE (occurrence: IE)
  Receive Date: 20140224
  Receipt Date: 20140224
  Transmission Date: 20141002
  Serious: Yes (Hospitalization, Other)
  Sender: FDA-Public Use
  Company Number: IE-JNJFOC-20140213733

PATIENT
  Age: 16 Year
  Sex: Female

DRUGS (2)
  1. PALEXIA [Suspect]
     Indication: PRODUCT USED FOR UNKNOWN INDICATION
     Route: 048
     Dates: start: 20140201, end: 20140201
  2. PARACETAMOL [Concomitant]
     Indication: PRODUCT USED FOR UNKNOWN INDICATION
     Route: 048
     Dates: start: 20140201, end: 20140201

REACTIONS (4)
  - Suicide attempt [Recovered/Resolved]
  - Medication error [Recovered/Resolved]
  - Intentional overdose [Recovered/Resolved]
  - Intentional drug misuse [Recovered/Resolved]
